FAERS Safety Report 18307109 (Version 2)
Quarter: 2022Q2

REPORT INFORMATION
  Report Type: Report from Study
  Country: US (occurrence: US)
  Receive Date: 20200924
  Receipt Date: 20220607
  Transmission Date: 20220721
  Serious: No
  Sender: FDA-Public Use
  Company Number: US-SHIRE-US202031166

PATIENT
  Sex: Female
  Weight: 41 kg

DRUGS (8)
  1. TEDUGLUTIDE [Suspect]
     Active Substance: TEDUGLUTIDE
     Indication: Short-bowel syndrome
     Dosage: 17 MILLIGRAM
     Route: 065
     Dates: start: 20200417
  2. TEDUGLUTIDE [Suspect]
     Active Substance: TEDUGLUTIDE
     Indication: Short-bowel syndrome
     Dosage: 17 MILLIGRAM
     Route: 065
     Dates: start: 20200417
  3. TEDUGLUTIDE [Suspect]
     Active Substance: TEDUGLUTIDE
     Indication: Short-bowel syndrome
     Dosage: 17 MILLIGRAM
     Route: 065
     Dates: start: 20200417
  4. TEDUGLUTIDE [Suspect]
     Active Substance: TEDUGLUTIDE
     Indication: Short-bowel syndrome
     Dosage: 17 MILLIGRAM
     Route: 065
     Dates: start: 20200417
  5. TEDUGLUTIDE [Suspect]
     Active Substance: TEDUGLUTIDE
     Dosage: 0.183 MILLILITER, QD
     Route: 050
     Dates: start: 20200420
  6. TEDUGLUTIDE [Suspect]
     Active Substance: TEDUGLUTIDE
     Dosage: 0.183 MILLILITER, QD
     Route: 050
     Dates: start: 20200420
  7. TEDUGLUTIDE [Suspect]
     Active Substance: TEDUGLUTIDE
     Dosage: 0.183 MILLILITER, QD
     Route: 050
     Dates: start: 20200420
  8. TEDUGLUTIDE [Suspect]
     Active Substance: TEDUGLUTIDE
     Dosage: 0.183 MILLILITER, QD
     Route: 050
     Dates: start: 20200420

REACTIONS (1)
  - Injection site bruising [Unknown]
